FAERS Safety Report 12229784 (Version 1)
Quarter: 2016Q1

REPORT INFORMATION
  Report Type: Spontaneous
  Country: US (occurrence: None)
  Receive Date: 20160331
  Receipt Date: 20160331
  Transmission Date: 20160526
  Serious: Yes (Hospitalization)
  Sender: FDA-Public Use
  Company Number: None

PATIENT
  Age: 63 Year
  Sex: Female

DRUGS (1)
  1. OTREXUP [Suspect]
     Active Substance: METHOTREXATE
     Indication: PRODUCT USED FOR UNKNOWN INDICATION
     Route: 058
     Dates: start: 20140424

REACTIONS (6)
  - Paraesthesia [None]
  - Myocardial infarction [None]
  - Candida infection [None]
  - Headache [None]
  - Chest discomfort [None]
  - Pulmonary oedema [None]

NARRATIVE: CASE EVENT DATE: 20151015
